FAERS Safety Report 10194794 (Version 1)
Quarter: 2014Q2

REPORT INFORMATION
  Report Type: Spontaneous
  Country: US (occurrence: US)
  Receive Date: 20140526
  Receipt Date: 20140526
  Transmission Date: 20141212
  Serious: No
  Sender: FDA-Public Use
  Company Number: US-B.I. PHARMACEUTICALS,INC./RIDGEFIELD-2014-BI-21366BP

PATIENT
  Sex: 0

DRUGS (2)
  1. PRADAXA [Suspect]
     Indication: DEEP VEIN THROMBOSIS
     Route: 065
  2. PRADAXA [Suspect]
     Indication: PULMONARY EMBOLISM

REACTIONS (1)
  - Off label use [Unknown]
